FAERS Safety Report 4844431-4 (Version None)
Quarter: 2005Q4

REPORT INFORMATION
  Report Type: 
  Country: None (occurrence: None)
  Receive Date: 20051202
  Receipt Date: 20051123
  Transmission Date: 20060501
  Serious: Yes (Other)
  Sender: FDA-Public Use
  Company Number: US-MERCK-0511USA04178

PATIENT
  Age: 70 Year
  Sex: Female
  Weight: 74 kg

DRUGS (1)
  1. VIOXX [Suspect]
     Route: 048
     Dates: start: 20020920, end: 20021001

REACTIONS (1)
  - CEREBROVASCULAR ACCIDENT [None]
